FAERS Safety Report 19134580 (Version 1)
Quarter: 2021Q2

REPORT INFORMATION
  Report Type: Spontaneous
  Country: US (occurrence: US)
  Receive Date: 20210414
  Receipt Date: 20210414
  Transmission Date: 20210717
  Serious: Yes (Hospitalization)
  Sender: FDA-Public Use
  Company Number: None

PATIENT
  Age: 66 Year
  Sex: Male
  Weight: 107 kg

DRUGS (1)
  1. BAMLANIVIMAB. [Suspect]
     Active Substance: BAMLANIVIMAB
     Indication: COVID-19
     Dates: start: 20210412, end: 20210412

REACTIONS (4)
  - Product formulation issue [None]
  - Blood pressure decreased [None]
  - Hypoxia [None]
  - Anaphylactic reaction [None]

NARRATIVE: CASE EVENT DATE: 20210412
